FAERS Safety Report 8857664 (Version 1)
Quarter: 2012Q4

REPORT INFORMATION
  Report Type: 
  Country: US (occurrence: US)
  Receive Date: 20121024
  Receipt Date: 20121024
  Transmission Date: 20130627
  Serious: Yes (Other)
  Sender: FDA-Public Use
  Company Number: US-TEVA-365699USA

PATIENT
  Age: 70 Year
  Sex: Male
  Weight: 86.26 kg

DRUGS (4)
  1. ACTIQ [Suspect]
     Indication: PAIN
     Dosage: Averages 3/day
     Route: 048
     Dates: start: 2002
  2. ^MICARDIS^ [Concomitant]
     Indication: BLOOD PRESSURE
  3. CRESTOR [Concomitant]
  4. ZETIA [Concomitant]

REACTIONS (6)
  - Ligament rupture [Unknown]
  - Drug ineffective [Not Recovered/Not Resolved]
  - Pain [Not Recovered/Not Resolved]
  - Fall [Unknown]
  - Ligament sprain [Unknown]
  - Off label use [Unknown]
